FAERS Safety Report 6649046-3 (Version None)
Quarter: 2010Q1

REPORT INFORMATION
  Report Type: 
  Country: None (occurrence: None)
  Receive Date: 20100324
  Receipt Date: 20100316
  Transmission Date: 20100710
  Serious: Yes (Other)
  Sender: FDA-Public Use
  Company Number: IL-JNJFOC-20100306104

PATIENT
  Age: 50 Year
  Sex: Female

DRUGS (6)
  1. FENTANYL [Suspect]
     Indication: DRUG USE FOR UNKNOWN INDICATION
     Route: 062
  2. CITALOPRAM HYDROBROMIDE [Interacting]
     Indication: ANXIETY
     Route: 065
  3. CITALOPRAM HYDROBROMIDE [Interacting]
     Route: 065
  4. CITALOPRAM HYDROBROMIDE [Interacting]
     Indication: MAJOR DEPRESSION
     Route: 065
  5. CITALOPRAM HYDROBROMIDE [Interacting]
     Route: 065
  6. MORPHINE [Concomitant]
     Indication: DRUG USE FOR UNKNOWN INDICATION
     Route: 042

REACTIONS (2)
  - DRUG INTERACTION [None]
  - SEROTONIN SYNDROME [None]
